FAERS Safety Report 6096885-6 (Version None)
Quarter: 2009Q1

REPORT INFORMATION
  Report Type: 
  Country: None (occurrence: None)
  Receive Date: 20090225
  Receipt Date: 20090225
  Transmission Date: 20090719
  Serious: Yes (Hospitalization)
  Sender: FDA-Public Use
  Company Number: None

PATIENT
  Age: 64 Year
  Sex: Male
  Weight: 132 kg

DRUGS (21)
  1. LISINOPRIL [Suspect]
     Indication: HYPERTENSION
     Dosage: 40 MG ONCE DAILY ORALLY
     Route: 048
     Dates: start: 20071224, end: 20090104
  2. NITROGYLCERIN [Concomitant]
  3. OMEPRAZOLE [Concomitant]
  4. TERAZOSIN HCL [Concomitant]
  5. NOVOLIN N [Concomitant]
  6. REGULAR HUMAN INSULIN [Concomitant]
  7. DIPHENHYDRAMINE HCL [Concomitant]
  8. CLOTRIMAZOLE [Concomitant]
  9. METOPROLOL [Concomitant]
  10. ASCORBIC ACID [Concomitant]
  11. VICODIN [Concomitant]
  12. SENNOSIDE [Concomitant]
  13. ATORVASTATIN CALCIUM [Concomitant]
  14. FOLIC ACID [Concomitant]
  15. NITROGLYCERIN [Concomitant]
  16. PREDNISONE [Concomitant]
  17. ASPIRIN [Concomitant]
  18. INDAPAMIDE [Concomitant]
  19. MULTI-VITAMIN [Concomitant]
  20. GARLIC [Concomitant]
  21. FISH OIL [Concomitant]

REACTIONS (2)
  - ANGIOEDEMA [None]
  - TREATMENT NONCOMPLIANCE [None]
